FAERS Safety Report 17681553 (Version 5)
Quarter: 2020Q2

REPORT INFORMATION
  Report Type: Report from Study
  Country: IN (occurrence: IN)
  Receive Date: 20200417
  Receipt Date: 20200609
  Transmission Date: 20200714
  Serious: Yes (Other)
  Sender: FDA-Public Use
  Company Number: NVSC2020IN015550

PATIENT
  Age: 48 Year
  Sex: Male
  Weight: 107 kg

DRUGS (5)
  1. GALVUS MET [Suspect]
     Active Substance: METFORMIN HYDROCHLORIDE\VILDAGLIPTIN
     Indication: DIABETES MELLITUS
     Dosage: 0-1-1
     Route: 048
  2. RECLIDE [Concomitant]
     Indication: DIABETES MELLITUS
     Dosage: 0.5 DF, QD (40 OT)
     Route: 048
  3. ALDONIL [Concomitant]
     Indication: DIABETIC NEUROPATHY
     Dosage: 1 DF, BID
     Route: 048
  4. CONCOR [Concomitant]
     Active Substance: BISOPROLOL FUMARATE
     Indication: HYPERTENSION
     Dosage: 1 DF, BID
     Route: 048
  5. DAPAGLIFLOZIN, METFORMIN [Concomitant]
     Indication: DIABETES MELLITUS
     Dosage: 0.5 DF, QD
     Route: 065

REACTIONS (8)
  - Discomfort [Unknown]
  - Pain in extremity [Unknown]
  - Blood triglycerides increased [Unknown]
  - Hyperglycaemia [Unknown]
  - Glycosylated haemoglobin increased [Unknown]
  - Weight increased [Not Recovered/Not Resolved]
  - Blood cholesterol increased [Unknown]
  - Weight decreased [Unknown]

NARRATIVE: CASE EVENT DATE: 20200116
